FAERS Safety Report 8889013 (Version 2)
Quarter: 2012Q4

REPORT INFORMATION
  Report Type: 
  Country: US (occurrence: US)
  Receive Date: 20121106
  Receipt Date: 20121128
  Transmission Date: 20130627
  Serious: No
  Sender: FDA-Public Use
  Company Number: US-PFIZER INC-2012272988

PATIENT
  Age: 56 Year
  Sex: Female
  Weight: 56.69 kg

DRUGS (5)
  1. ESTRING [Suspect]
     Indication: HOT FLASHES
     Dosage: UNK
     Route: 067
     Dates: start: 20121030, end: 20121031
  2. ESTRING [Suspect]
     Indication: VAGINAL DRYNESS
  3. ESTRING [Suspect]
     Indication: VAGINAL ITCHING
  4. ESTRING [Suspect]
     Indication: VAGINAL BURNING SENSATION
  5. TACLONEX [Concomitant]
     Indication: PSORIASIS
     Dosage: UNK, as needed

REACTIONS (1)
  - Discomfort [Unknown]
